FAERS Safety Report 7553506-0 (Version None)
Quarter: 2011Q2

REPORT INFORMATION
  Report Type: 
  Country: None (occurrence: None)
  Receive Date: 20110617
  Receipt Date: 20110131
  Transmission Date: 20111010
  Serious: Yes (Death, Other)
  Sender: FDA-Public Use
  Company Number: US-BAYER-201041655NA

PATIENT
  Age: 72 Year
  Sex: Female

DRUGS (11)
  1. CELEBREX [Concomitant]
  2. HEPARIN [Concomitant]
     Dosage: UNK
     Dates: start: 20050815
  3. ATENOLOL [Concomitant]
  4. IMDUR [Concomitant]
  5. TRASYLOL [Suspect]
     Indication: CORONARY ARTERY BYPASS
     Dosage: UNK
     Route: 042
     Dates: start: 20050825
  6. ACETYLSALICYLIC ACID SRT [Concomitant]
  7. IRBESARTAN [Concomitant]
  8. ZOLOFT [Concomitant]
  9. PREMARIN [Concomitant]
  10. LASIX [Concomitant]
  11. NITROGLYCERIN [Concomitant]
     Dosage: UNK
     Dates: start: 20050815

REACTIONS (9)
  - MULTI-ORGAN FAILURE [None]
  - ANXIETY [None]
  - DEATH [None]
  - UNEVALUABLE EVENT [None]
  - PAIN [None]
  - EMOTIONAL DISTRESS [None]
  - STRESS [None]
  - FEAR [None]
  - RENAL FAILURE [None]
